FAERS Safety Report 7673601 (Version 4)
Quarter: 2013Q2

REPORT INFORMATION
  Report Type: Report from Study
  Country: DE (occurrence: DE)
  Receive Date: 20101118
  Receipt Date: 20130422
  Transmission Date: 20140414
  Serious: Yes (Hospitalization)
  Sender: FDA-Public Use
  Company Number: DE-BRISTOL-MYERS SQUIBB COMPANY-15389976

PATIENT
  Age: 43 Year
  Sex: Female
  Weight: 45 kg

DRUGS (5)
  1. CETUXIMAB [Suspect]
     Indication: HEAD AND NECK CANCER
     Dosage: CISPLATIN INTRAVENOUS INFUSION?362.5 MG,INTER UNK DATE,RESTARTED:8NOV10?RECENT DOSE:8NOV10
     Route: 042
     Dates: start: 20101011
  2. CISPLATIN FOR INJ [Suspect]
     Indication: HEAD AND NECK CANCER
     Dosage: INTERRUPTED ON UNK DATE + RESTARTED ON 08-OCT-10,195 MG RECENT DOSE:8NOV10
     Route: 042
     Dates: start: 20101011
  3. DOCETAXEL [Suspect]
     Indication: HEAD AND NECK CANCER
     Dosage: DOCETAXEL INTRAVENOUS INFUSION?INTERRUPTED UNK DATE,RESTARTED ON 08NOV10,RECENT DOSE:8NOV10
     Route: 042
     Dates: start: 20101011
  4. FLUOROURACIL [Suspect]
     Indication: HEAD AND NECK CANCER
     Dosage: FLUOROURACIL INTRAVENOUS INFUSION?INTER ON UNK DATE + RESTARTED:8-OCT-10,2900 MG RECENT DOSE:8NOV10
     Route: 042
     Dates: start: 20101011
  5. DUROGESIC [Concomitant]
     Indication: PAIN
     Dosage: 1 DF = 25 UNIT NOT MENTIONED
     Dates: start: 20100930

REACTIONS (6)
  - Neutropenia [Recovered/Resolved]
  - Leukopenia [Recovered/Resolved]
  - Anaemia [Recovered/Resolved]
  - Vomiting [Recovered/Resolved]
  - Nausea [Recovered/Resolved]
  - Fatigue [Recovered/Resolved]
